FAERS Safety Report 7825620-3 (Version None)
Quarter: 2011Q4

REPORT INFORMATION
  Report Type: 
  Country: None (occurrence: None)
  Receive Date: 20111019
  Receipt Date: 20110905
  Transmission Date: 20120403
  Serious: Yes (Life-Threatening, Hospitalization)
  Sender: FDA-Public Use
  Company Number: PHHY2011LT88277

PATIENT
  Age: 82 Year
  Sex: Female
  Weight: 68 kg

DRUGS (1)
  1. DICLOFENAC [Suspect]
     Indication: ARTHRALGIA
     Dosage: 150 MG, PRN
     Route: 048
     Dates: end: 20110801

REACTIONS (4)
  - PULMONARY ARTERY THROMBOSIS [None]
  - ANGINA UNSTABLE [None]
  - MELAENA [None]
  - GASTRIC ULCER HAEMORRHAGE [None]
